FAERS Safety Report 21598936 (Version 2)
Quarter: 2022Q4

REPORT INFORMATION
  Report Type: Spontaneous
  Country: US (occurrence: US)
  Receive Date: 20221115
  Receipt Date: 20221204
  Transmission Date: 20230113
  Serious: No
  Sender: FDA-Public Use
  Company Number: US-SA-SAC20221114000443

PATIENT
  Age: 46 Year
  Sex: Female

DRUGS (5)
  1. DUPIXENT [Suspect]
     Active Substance: DUPILUMAB
     Indication: Asthma
     Dosage: 400 MG, 1X
     Route: 058
     Dates: start: 20220815, end: 20220815
  2. DUPIXENT [Suspect]
     Active Substance: DUPILUMAB
     Dosage: 200 MG, QOW
     Route: 058
  3. LORATADINE [Concomitant]
     Active Substance: LORATADINE
     Indication: Peripheral swelling
  4. LORATADINE [Concomitant]
     Active Substance: LORATADINE
     Indication: Mobility decreased
  5. LORATADINE [Concomitant]
     Active Substance: LORATADINE
     Indication: Skin warm

REACTIONS (3)
  - Peripheral swelling [Unknown]
  - Mobility decreased [Unknown]
  - Skin warm [Unknown]

NARRATIVE: CASE EVENT DATE: 20220101
